FAERS Safety Report 21777736 (Version 1)
Quarter: 2022Q4

REPORT INFORMATION
  Report Type: Spontaneous
  Country: MY (occurrence: MY)
  Receive Date: 20221226
  Receipt Date: 20221226
  Transmission Date: 20230113
  Serious: Yes (Other)
  Sender: FDA-Public Use
  Company Number: MY-AUROBINDO-AUR-APL-2022-055436

PATIENT
  Age: 43 Year
  Sex: Female

DRUGS (1)
  1. PIPERACILLIN SODIUM\TAZOBACTAM SODIUM [Suspect]
     Active Substance: PIPERACILLIN SODIUM\TAZOBACTAM SODIUM
     Indication: Pneumonia
     Dosage: 2.25 GRAM, FOUR TIMES/DAY
     Route: 042

REACTIONS (3)
  - Cough [Recovering/Resolving]
  - Blood pressure increased [Recovering/Resolving]
  - Rash [Recovering/Resolving]
